FAERS Safety Report 9048663 (Version 3)
Quarter: 2013Q1

REPORT INFORMATION
  Report Type: Spontaneous
  Country: US (occurrence: US)
  Receive Date: 20130131
  Receipt Date: 20130212
  Transmission Date: 20140127
  Serious: Yes (Hospitalization)
  Sender: FDA-Public Use
  Company Number: US-PFIZER INC-2012296513

PATIENT
  Age: 69 Year
  Sex: Female
  Weight: 51.7 kg

DRUGS (4)
  1. CENTRUM [Suspect]
     Indication: VITAMIN SUPPLEMENTATION
     Dosage: AS NEEDED
     Route: 048
     Dates: start: 201211, end: 20121121
  2. AMLODIPINE BESILATE [Suspect]
     Indication: BLOOD PRESSURE
     Dosage: 5 MG, 1X/DAY
     Dates: start: 201301
  3. TENORMIN [Concomitant]
     Indication: CARDIAC DISORDER
     Dosage: UNK, 2X/DAY (ONE TABLET OF 50 MG IN THE MORNING AND HALF TABLET OF 50 MG IN THE EVENING)
     Dates: start: 1990
  4. EXCEDRIN (ASPIRIN/CAFFEINE/PARACETAMOL) [Concomitant]
     Indication: CARDIAC DISORDER
     Dosage: UNK

REACTIONS (6)
  - Fall [Unknown]
  - Hypokinesia [Unknown]
  - Hypertension [Unknown]
  - Orthostatic hypotension [Unknown]
  - Poor quality drug administered [Unknown]
  - Product colour issue [Unknown]
